FAERS Safety Report 6155538-6 (Version None)
Quarter: 2009Q2

REPORT INFORMATION
  Report Type: 
  Country: None (occurrence: None)
  Receive Date: 20090415
  Receipt Date: 20090413
  Transmission Date: 20091009
  Serious: Yes (Other)
  Sender: FDA-Public Use
  Company Number: CA-GENENTECH-265641

PATIENT
  Age: 59 Year
  Sex: Male

DRUGS (3)
  1. AVASTIN [Suspect]
     Indication: RECTAL CANCER
  2. CAPECITABINE [Concomitant]
     Indication: RECTAL CANCER
  3. IRINOTECAN HCL [Concomitant]
     Indication: RECTAL CANCER

REACTIONS (1)
  - INTESTINAL OBSTRUCTION [None]
